FAERS Safety Report 4507744-1 (Version None)
Quarter: 2005Q1

REPORT INFORMATION
  Report Type: 
  Country: None (occurrence: None)
  Receive Date: 20041018
  Receipt Date: 20040716
  Transmission Date: 20050727
  Serious: No
  Sender: FDA-Public Use
  Company Number: 207211

PATIENT
  Age: 52 Year
  Sex: Female

DRUGS (9)
  1. XOLAIR [Suspect]
     Indication: ASTHMA
     Dosage: 300 MG, Q4W, SUBCUTANEOUS
     Route: 058
     Dates: start: 20040402
  2. ADVAIR          (SALMETEROL XINAFOATE, FLUITCASONE PROPIONATE) [Concomitant]
  3. ZYRTEC [Concomitant]
  4. RITALIN [Concomitant]
  5. DEMADEX [Concomitant]
  6. ARTHROTEC (MISOPROSTOL, DICLOFENAC SODIUM) [Concomitant]
  7. LIPITOR [Concomitant]
  8. VICODIN (HYDROCODONE BITARTRATE, ACETAMINOPHEN) [Concomitant]
  9. TOPAMAX [Concomitant]

REACTIONS (2)
  - MYALGIA [None]
  - PAIN IN EXTREMITY [None]
